FAERS Safety Report 21833693 (Version 2)
Quarter: 2023Q1

REPORT INFORMATION
  Report Type: Spontaneous
  Country: US (occurrence: US)
  Receive Date: 20230107
  Receipt Date: 20230210
  Transmission Date: 20230417
  Serious: Yes (Hospitalization)
  Sender: FDA-Public Use
  Company Number: US-SA-SAC20230106000580

PATIENT
  Age: 30 Year
  Sex: Female

DRUGS (60)
  1. DUPIXENT [Suspect]
     Active Substance: DUPILUMAB
     Indication: Asthma
     Dosage: 300 MG, QOW
     Route: 058
     Dates: start: 20221118
  2. ACETYLCYSTEINE [Concomitant]
     Active Substance: ACETYLCYSTEINE
     Dosage: ACETYLCYST SOL 10%
  3. ALBUTEROL [Concomitant]
     Active Substance: ALBUTEROL
     Dosage: ALBUTEROL AER HFA
  4. ALBUTEROL [Concomitant]
     Active Substance: ALBUTEROL
     Dosage: ALBUTEROL NEB 0.083%
  5. LOPINAVIR\RITONAVIR [Concomitant]
     Active Substance: LOPINAVIR\RITONAVIR
     Dosage: ALTERA HANDSET
  6. ACETAMINOPHEN\CODEINE PHOSPHATE [Concomitant]
     Active Substance: ACETAMINOPHEN\CODEINE PHOSPHATE
     Dosage: APAP/CODEINE TAB 300-30MG
  7. AZELASTINE [Concomitant]
     Active Substance: AZELASTINE
     Dosage: AZELASTINE SPR 0.1%;
  8. AZITHROMYCIN [Concomitant]
     Active Substance: AZITHROMYCIN
  9. BENZONATATE [Concomitant]
     Active Substance: BENZONATATE
  10. DIETARY SUPPLEMENT [Concomitant]
     Active Substance: DIETARY SUPPLEMENT
     Dosage: BOOST PLUS CHOCOLATE
  11. BROVANA [Concomitant]
     Active Substance: ARFORMOTEROL TARTRATE
     Dosage: BROVANA NEB 15MCG; BROVANA 15 MCG NEB
  12. BUDESONIDE [Concomitant]
     Active Substance: BUDESONIDE
     Dosage: BUDESONIDE SUS 0.5MG/2; BUDESONIDE 0.5 MG/2ML INH
  13. CATHFLO ACTIVASE [Concomitant]
     Active Substance: ALTEPLASE
     Dosage: CATHFLO ACTI INJ 2MG
  14. CAYSTON [Concomitant]
     Active Substance: AZTREONAM
     Dosage: CAYSTON 75 MG INHAL SOLUTION
     Route: 055
  15. CETIRIZINE [Concomitant]
     Active Substance: CETIRIZINE HYDROCHLORIDE
  16. CREON [Concomitant]
     Active Substance: PANCRELIPASE AMYLASE\PANCRELIPASE LIPASE\PANCRELIPASE PROTEASE
     Dosage: CREON CAP 24000UNT
  17. DIPHENHYDRAMINE [Concomitant]
     Active Substance: DIPHENHYDRAMINE
     Dosage: DIPHENHYDRAM INJ 50MG/ML
  18. ERYTHROMYCIN [Concomitant]
     Active Substance: ERYTHROMYCIN
  19. ESOMEPRAZOLE [Concomitant]
     Active Substance: ESOMEPRAZOLE
  20. FEXOFENADINE [Concomitant]
     Active Substance: FEXOFENADINE HYDROCHLORIDE
  21. FLUTICASONE PROPIONATE [Concomitant]
     Active Substance: FLUTICASONE PROPIONATE
     Dosage: FLUTICASONE SPR 50MCG
  22. FOLIC ACID [Concomitant]
     Active Substance: FOLIC ACID
  23. GLUCAGON [Concomitant]
     Active Substance: GLUCAGON
     Dosage: GLUCAGON KIT 1MG
  24. HYDROCHLOROTHIAZIDE [Concomitant]
     Active Substance: HYDROCHLOROTHIAZIDE
  25. IBUPROFEN [Concomitant]
     Active Substance: IBUPROFEN
  26. INSULIN LISPRO [Concomitant]
     Active Substance: INSULIN LISPRO
  27. ALBUTEROL\IPRATROPIUM [Concomitant]
     Active Substance: ALBUTEROL\IPRATROPIUM
     Dosage: IPRATROPIUM/ SOL ALBUTER
  28. METOCLOPRAMIDE [Concomitant]
     Active Substance: METOCLOPRAMIDE
  29. METOCLOPRAMIDE [Concomitant]
     Active Substance: METOCLOPRAMIDE
  30. MONTELUKAST [Concomitant]
     Active Substance: MONTELUKAST SODIUM
  31. NAPROXEN [Concomitant]
     Active Substance: NAPROXEN
  32. NORTRIPTYLINE [Concomitant]
     Active Substance: NORTRIPTYLINE
  33. ONDANSETRON [Concomitant]
     Active Substance: ONDANSETRON
  34. OYSTER SHELL [Concomitant]
     Active Substance: OSTREA EDULIS SHELL
  35. POLYETHYLENE GLYCOLS [Concomitant]
     Active Substance: POLYETHYLENE GLYCOLS
     Dosage: POLYETH GLYC POW 3350 NF
  36. PREDNISONE [Concomitant]
     Active Substance: PREDNISONE
  37. PROMETHAZINE [Concomitant]
     Active Substance: PROMETHAZINE HYDROCHLORIDE
     Dosage: PROMETHAZINE SYP 6.25/5ML
  38. PULMOZYME [Concomitant]
     Active Substance: DORNASE ALFA
     Dosage: PULMOZYME SOL 1MG/ML
  39. PULMOZYME [Concomitant]
     Active Substance: DORNASE ALFA
     Dosage: PULMOZYME 2.5MG/2.5MLNEB 90=30
  40. ROBAFEN [GUAIFENESIN] [Concomitant]
     Dosage: ROBAFEN LIQ 200/10ML
  41. SODIUM CHLORIDE [Concomitant]
     Active Substance: SODIUM CHLORIDE
  42. DEEP SEA PREMIUM SALINE [Concomitant]
     Dosage: DEEP SEA NASAL SPRAY
  43. SODIUM CHLORIDE [Concomitant]
     Active Substance: SODIUM CHLORIDE
     Dosage: SODIUM CHLOR NEB 7%
  44. TOBRAMYCIN [Concomitant]
     Active Substance: TOBRAMYCIN
     Dosage: TOBRAMYCIN NEB 300/5ML
  45. URSODIOL [Concomitant]
     Active Substance: URSODIOL
  46. VITAMIN B6 [Concomitant]
     Active Substance: PYRIDOXINE HYDROCHLORIDE
  47. VITAMIN E [Concomitant]
     Active Substance: .ALPHA.-TOCOPHEROL
     Dosage: VITAMIN E 400 U (180MG) SOFTGEL
  48. WIXELA INHUB [Concomitant]
     Active Substance: FLUTICASONE PROPIONATE\SALMETEROL XINAFOATE
     Dosage: WIXELA INHUB AER 250/50
  49. ALBUTEROL SULFATE [Concomitant]
     Active Substance: ALBUTEROL SULFATE
     Indication: Asthma
     Dosage: UNK
  50. CODEINE [Concomitant]
     Active Substance: CODEINE
     Indication: Cough
     Dosage: 30030 MG
  51. DEEP SEA FISH OIL [Concomitant]
     Dosage: 50 MG
  52. FASENRA [Concomitant]
     Active Substance: BENRALIZUMAB
     Indication: Asthma
     Dosage: 40 MG
  53. FLUTICASONE [Concomitant]
     Active Substance: FLUTICASONE
     Dosage: 180 MG
  54. IPRATROPIUM [Concomitant]
     Active Substance: IPRATROPIUM
     Dosage: 10 MG
  55. CHLOR [Concomitant]
     Dosage: UNK
  56. TOBRAMYCIN [Concomitant]
     Active Substance: TOBRAMYCIN
     Dosage: 250 MG
  57. VITAMIN B6 [Concomitant]
     Active Substance: PYRIDOXINE HYDROCHLORIDE
     Dosage: 50 MG
  58. VITAMIN E NICOTINATE [Concomitant]
     Dosage: 180 MG
  59. CIPROTON [Concomitant]
     Dosage: UNK
  60. LEVAQUIN [Concomitant]
     Active Substance: LEVOFLOXACIN
     Dosage: 750 MG

REACTIONS (3)
  - Hospitalisation [Unknown]
  - Respiratory symptom [Unknown]
  - Respiratory syncytial virus infection [Unknown]
